FAERS Safety Report 8836522 (Version 1)
Quarter: 2012Q4

REPORT INFORMATION
  Report Type: Spontaneous
  Country: US (occurrence: None)
  Receive Date: 20121009
  Receipt Date: 20121009
  Transmission Date: 20130627
  Serious: Yes (Hospitalization)
  Sender: FDA-Public Use
  Company Number: 2012-0942

PATIENT
  Age: 72 Year
  Sex: Male

DRUGS (5)
  1. KYPROLIS [Suspect]
     Indication: MULTIPLE MYELOMA
     Route: 042
     Dates: start: 20120918, end: 20120918
  2. LYRICA (PREGABALIN) (PREGABALIN) [Concomitant]
  3. MARTINOL (DRONABINOL) (DRONABINOL) [Concomitant]
  4. OXYCODONE [Suspect]
  5. CELEXA (CITALOPRAM HYDROBROMIDE) (CITALOPRAM) [Concomitant]

REACTIONS (11)
  - Agitation [None]
  - Confusional state [None]
  - Amnesia [None]
  - Tremor [None]
  - Dyspnoea [None]
  - Hyperhidrosis [None]
  - Muscle twitching [None]
  - Disorientation [None]
  - Dehydration [None]
  - Nausea [None]
  - Vomiting [None]
